FAERS Safety Report 7349860-5 (Version None)
Quarter: 2011Q1

REPORT INFORMATION
  Report Type: 
  Country: None (occurrence: None)
  Receive Date: 20110222
  Receipt Date: 20100628
  Transmission Date: 20110831
  Serious: Yes (Hospitalization)
  Sender: FDA-Public Use
  Company Number: WAES 1006USA04295

PATIENT
  Age: 55 Year
  Sex: Male

DRUGS (1)
  1. ZOCOR [Suspect]
     Indication: BLOOD CHOLESTEROL
     Dosage: 80 MG/DAILY/PO
     Route: 048

REACTIONS (3)
  - MUSCULAR WEAKNESS [None]
  - DYSPNOEA [None]
  - RASH GENERALISED [None]
